FAERS Safety Report 4357184-3 (Version None)
Quarter: 2004Q2

REPORT INFORMATION
  Report Type: 
  Country: None (occurrence: None)
  Receive Date: 20040511
  Receipt Date: 20040511
  Transmission Date: 20050107
  Serious: Yes (Life-Threatening, Hospitalization)
  Sender: FDA-Public Use
  Company Number: None

PATIENT
  Age: 72 Year
  Sex: Male
  Weight: 117 kg

DRUGS (25)
  1. HYDROCHLOROTHIAZIDE [Suspect]
  2. SEVELAMER [Concomitant]
  3. TEMAZEPAM [Concomitant]
  4. ATENOLOL [Concomitant]
  5. FUROSEMIDE [Concomitant]
  6. ASPIRIN [Concomitant]
  7. ACETAMINOPHEN [Concomitant]
  8. GABAPENTIN [Concomitant]
  9. FLUNISOLIDE [Concomitant]
  10. IBUPROFEN GEL [Concomitant]
  11. SILDENAFIL [Concomitant]
  12. METFORMIN HCL [Concomitant]
  13. TRAMADOL HCL [Concomitant]
  14. SIMVASTATIN [Concomitant]
  15. ROSGLITAZONE [Concomitant]
  16. GABAPENTIN [Concomitant]
  17. VERAPAMIL [Concomitant]
  18. FOSINOPRIL SODIUM [Concomitant]
  19. SIMVASTATIN [Concomitant]
  20. CALCITONIN-SALMON NASAL SOL [Concomitant]
  21. GLIPIZIDE [Concomitant]
  22. PREDNISONE [Concomitant]
  23. OMEPRAZOLE [Concomitant]
  24. RANITIDINE [Concomitant]
  25. METOCLOPRAMIDE [Concomitant]

REACTIONS (5)
  - ABDOMINAL DISTENSION [None]
  - BLOOD UREA INCREASED [None]
  - CREATINE URINE INCREASED [None]
  - DYSPNOEA [None]
  - OEDEMA PERIPHERAL [None]
